FAERS Safety Report 17534957 (Version 6)
Quarter: 2020Q4

REPORT INFORMATION
  Report Type: Spontaneous
  Country: US (occurrence: US)
  Receive Date: 20200312
  Receipt Date: 20201030
  Transmission Date: 20210113
  Serious: Yes (Other)
  Sender: FDA-Public Use
  Company Number: US-AKCEA THERAPEUTICS-2020IS001013

PATIENT
  Age: 71 Year
  Sex: Male

DRUGS (2)
  1. ISSD (INTEGRATED SYRINGE SAFETY DEVICE) [Suspect]
     Active Substance: DEVICE
  2. TEGSEDI [Suspect]
     Active Substance: INOTERSEN SODIUM
     Indication: HEREDITARY NEUROPATHIC AMYLOIDOSIS
     Route: 058
     Dates: start: 201604

REACTIONS (15)
  - Hypotension [Not Recovered/Not Resolved]
  - Hypertension [Not Recovered/Not Resolved]
  - Retching [Not Recovered/Not Resolved]
  - Presyncope [Unknown]
  - Dizziness [Not Recovered/Not Resolved]
  - Atrial fibrillation [Unknown]
  - Change of bowel habit [Unknown]
  - Orthostatic hypotension [Not Recovered/Not Resolved]
  - Chills [Not Recovered/Not Resolved]
  - Ventricular extrasystoles [Unknown]
  - Fear of falling [Unknown]
  - Adverse drug reaction [Not Recovered/Not Resolved]
  - Dizziness postural [Unknown]
  - Chills [Unknown]
  - Nausea [Not Recovered/Not Resolved]

NARRATIVE: CASE EVENT DATE: 20190104
